FAERS Safety Report 15555589 (Version 2)
Quarter: 2018Q4

REPORT INFORMATION
  Report Type: Spontaneous
  Country: CA (occurrence: CA)
  Receive Date: 20181026
  Receipt Date: 20181121
  Transmission Date: 20190205
  Serious: Yes (Life-Threatening, Disabling, Other)
  Sender: FDA-Public Use
  Company Number: CA-PFIZER INC-2018428417

PATIENT
  Age: 15 Year
  Sex: Male
  Weight: 96.4 kg

DRUGS (20)
  1. LORAZEPAM. [Concomitant]
     Active Substance: LORAZEPAM
     Dosage: 2 MG, SINGLE
     Route: 048
     Dates: start: 20181009, end: 20181009
  2. DIMENHYDRINATE. [Concomitant]
     Active Substance: DIMENHYDRINATE
     Dosage: 50 MG, Q 6H PRN
     Route: 048
     Dates: start: 20180928
  3. PREDNISONE. [Concomitant]
     Active Substance: PREDNISONE
     Indication: HYPERLEUKOCYTOSIS
     Dosage: 40 MG, 2X/DAY
     Route: 048
     Dates: start: 20181009, end: 20181012
  4. DIMENHYDRINATE. [Concomitant]
     Active Substance: DIMENHYDRINATE
     Indication: NAUSEA
     Dosage: 50 MG, Q 6H PRN
     Route: 042
     Dates: start: 20180928
  5. FUROSEMIDE. [Concomitant]
     Active Substance: FUROSEMIDE
     Indication: POLYURIA
     Dosage: 20-40MG DAILY - 2X/DAY
     Route: 042
     Dates: start: 20181009, end: 20181014
  6. LORAZEPAM. [Concomitant]
     Active Substance: LORAZEPAM
     Indication: ANXIETY
     Dosage: 2 MG, SINGLE
     Route: 048
     Dates: start: 20181006, end: 20181006
  7. URSODIOL. [Concomitant]
     Active Substance: URSODIOL
     Indication: LIVER INJURY
     Dosage: 250 MG, 2X/DAY
     Route: 048
     Dates: start: 20181012
  8. LORAZEPAM. [Concomitant]
     Active Substance: LORAZEPAM
     Dosage: 2 MG, SINGLE
     Route: 048
     Dates: start: 20181012, end: 20181012
  9. RANITIDINE. [Concomitant]
     Active Substance: RANITIDINE
     Indication: DYSPEPSIA
     Dosage: 150 MG, 2X/DAY
     Route: 048
     Dates: start: 20121009, end: 20181012
  10. TYLENOL [Concomitant]
     Active Substance: ACETAMINOPHEN
     Indication: PREMEDICATION
     Dosage: 650 MG, SINGLE
     Route: 048
     Dates: start: 20181012, end: 20181012
  11. METHYLPREDNISOLONE. [Concomitant]
     Active Substance: METHYLPREDNISOLONE
     Indication: PREMEDICATION
     Dosage: 96 MG, SINGLE
     Route: 042
     Dates: start: 20181012, end: 20181012
  12. ALUMINUM HYDROXIDE [ALUMINIUM HYDROXIDE] [Concomitant]
     Indication: HYPERPHOSPHATAEMIA
     Dosage: 1200 MG, 2X/DAY
     Route: 048
     Dates: start: 20181009, end: 20181013
  13. MORPHINE [Concomitant]
     Active Substance: MORPHINE
     Dosage: 10 MG, 4X/DAY PRN (AS NEEDED)
     Route: 048
     Dates: start: 20181011
  14. HYDROXYUREA. [Concomitant]
     Active Substance: HYDROXYUREA
     Indication: HYPERLEUKOCYTOSIS
     Dosage: 5000 MG, DAILY
     Route: 048
     Dates: start: 20181009, end: 20181012
  15. INOTUZUMAB OZOGAMICIN [Suspect]
     Active Substance: INOTUZUMAB OZOGAMICIN
     Indication: ACUTE LYMPHOCYTIC LEUKAEMIA RECURRENT
     Dosage: 0.8 MG/KG (1.725MG), SINGLE
     Route: 042
     Dates: start: 20181012, end: 20181012
  16. ONDASETRON [ONDANSETRON] [Concomitant]
     Indication: NAUSEA
     Dosage: 12 MG, EVERY 8 HOURS AS NEEDED
     Route: 042
     Dates: start: 20181010
  17. MORPHINE [Concomitant]
     Active Substance: MORPHINE
     Indication: PAIN
     Dosage: 5 MG, 4X/DAY PRN (AS NEEDED)
     Route: 048
     Dates: start: 20181011, end: 20181011
  18. PEG 3350 [Concomitant]
     Active Substance: POLYETHYLENE GLYCOL 3350
     Indication: CONSTIPATION
     Dosage: 17 G, DAILY PRN (AS NEEDED)
     Route: 048
     Dates: start: 20180928
  19. RANITIDINE. [Concomitant]
     Active Substance: RANITIDINE
     Dosage: 75 MG, 3X/DAY
     Route: 042
     Dates: start: 20181013, end: 20181014
  20. DIPHENHYDRAMINE. [Concomitant]
     Active Substance: DIPHENHYDRAMINE
     Indication: PREMEDICATION
     Dosage: 50 MG, SINGLE
     Route: 042
     Dates: start: 20181012, end: 20181012

REACTIONS (11)
  - Hypotension [Recovered/Resolved]
  - Activated partial thromboplastin time prolonged [Recovered/Resolved]
  - Diarrhoea [Recovered/Resolved]
  - Aspartate aminotransferase increased [Recovered/Resolved]
  - Alanine aminotransferase increased [Recovered/Resolved]
  - Pyrexia [Recovered/Resolved]
  - International normalised ratio increased [Recovered/Resolved]
  - Fluid imbalance [Recovered/Resolved]
  - Epistaxis [Recovered/Resolved]
  - Dizziness [Recovered/Resolved]
  - Blood bilirubin increased [Unknown]

NARRATIVE: CASE EVENT DATE: 20181012
